FAERS Safety Report 5113765-0 (Version None)
Quarter: 2006Q3

REPORT INFORMATION
  Report Type: 
  Country: None (occurrence: None)
  Receive Date: 20060921
  Receipt Date: 20060913
  Transmission Date: 20061208
  Serious: Yes (Other)
  Sender: FDA-Public Use
  Company Number: HQWYE788315SEP06

PATIENT
  Age: 55 Year
  Sex: Female
  Weight: 78 kg

DRUGS (5)
  1. TYGACIL [Suspect]
     Indication: ABSCESS
     Dosage: 100 MG LOADING DOSE THEN 50MG B.I.D., INTRAVENOUS
     Route: 042
     Dates: start: 20060906, end: 20060907
  2. POTASSIUM (POTASSIUM) [Concomitant]
  3. PROMETHAZINE [Concomitant]
  4. TETANUS AND DIPTHERIA TOXOIDS [Concomitant]
  5. ADSORBED (TETANS AND DIPTHERIA TOXOIDS) [Concomitant]

REACTIONS (2)
  - PHARYNGEAL OEDEMA [None]
  - SWELLING FACE [None]
